FAERS Safety Report 17515120 (Version 1)
Quarter: 2020Q1

REPORT INFORMATION
  Report Type: Report from Study
  Country: None (occurrence: CA)
  Receive Date: 20200309
  Receipt Date: 20200309
  Transmission Date: 20200409
  Serious: Yes (Hospitalization, Other)
  Sender: FDA-Public Use
  Company Number: CA-ABBVIE-20K-028-3304537-00

PATIENT
  Age: 62 Year
  Sex: Female

DRUGS (1)
  1. HUMIRA [Suspect]
     Active Substance: ADALIMUMAB
     Indication: COLITIS ULCERATIVE
     Route: 058
     Dates: start: 20180709

REACTIONS (6)
  - Staphylococcal infection [Unknown]
  - Post procedural complication [Recovered/Resolved]
  - Oral surgery [Recovered/Resolved]
  - Impaired healing [Unknown]
  - Trigger finger [Unknown]
  - Hospitalisation [Unknown]

NARRATIVE: CASE EVENT DATE: 201910
